FAERS Safety Report 6755573-0 (Version None)
Quarter: 2010Q2

REPORT INFORMATION
  Report Type: 
  Country: None (occurrence: None)
  Receive Date: 20100602
  Receipt Date: 20100526
  Transmission Date: 20101027
  Serious: Yes (Other)
  Sender: FDA-Public Use
  Company Number: 2010SP022881

PATIENT
  Age: 48 Year
  Sex: Female
  Weight: 54.7 kg

DRUGS (1)
  1. DESOGESTREL/ETHINYL ESTRADIOL [Suspect]
     Indication: MENSTRUATION IRREGULAR
     Dosage: 1 DF;QD;PO
     Route: 048
     Dates: start: 20100122, end: 20100420

REACTIONS (11)
  - BALANCE DISORDER [None]
  - DIZZINESS [None]
  - FEELING DRUNK [None]
  - NAUSEA [None]
  - OFF LABEL USE [None]
  - POLLAKIURIA [None]
  - SCINTILLATING SCOTOMA [None]
  - VISUAL BRIGHTNESS [None]
  - VISUAL FIELD DEFECT [None]
  - VISUAL IMPAIRMENT [None]
  - VOMITING [None]
